FAERS Safety Report 5302025-0 (Version None)
Quarter: 2007Q2

REPORT INFORMATION
  Report Type: 
  Country: None (occurrence: None)
  Receive Date: 20070412
  Receipt Date: 20070329
  Transmission Date: 20071010
  Serious: Yes (Death, Life-Threatening, Hospitalization)
  Sender: FDA-Public Use
  Company Number: 2006MP000847

PATIENT
  Age: 77 Year
  Sex: Female

DRUGS (3)
  1. DECITABINE (DECITABINE) [Suspect]
     Indication: MYELODYSPLASTIC SYNDROME
     Dosage: 20 MG/M**2; QD X5DQ28D; IV
     Route: 042
     Dates: start: 20060619, end: 20060623
  2. DESFERAL [Concomitant]
  3. DIURETICS [Concomitant]

REACTIONS (15)
  - BLOOD CREATININE INCREASED [None]
  - BLOOD LACTIC ACID INCREASED [None]
  - CLOSTRIDIAL INFECTION [None]
  - COLITIS ISCHAEMIC [None]
  - GENERAL PHYSICAL HEALTH DETERIORATION [None]
  - HYPOTENSION [None]
  - INTERNATIONAL NORMALISED RATIO DECREASED [None]
  - LARGE INTESTINE PERFORATION [None]
  - NECROTISING COLITIS [None]
  - NEUTROPENIA [None]
  - ORGAN FAILURE [None]
  - PLATELET COUNT DECREASED [None]
  - PNEUMATOSIS [None]
  - SEPSIS [None]
  - URINE OUTPUT DECREASED [None]
